FAERS Safety Report 8334411-9 (Version None)
Quarter: 2012Q2

REPORT INFORMATION
  Report Type: 
  Country: None (occurrence: None)
  Receive Date: 20120503
  Receipt Date: 20110317
  Transmission Date: 20120825
  Serious: No
  Sender: FDA-Public Use
  Company Number: US-BAUSCH-2011BL001677

PATIENT
  Age: 83 Year
  Sex: Female

DRUGS (3)
  1. LOTEMAX [Suspect]
     Indication: DRY EYE
     Route: 047
     Dates: start: 20110225, end: 20110310
  2. CORTICOSTEROID NOS [Concomitant]
     Indication: DRY EYE
     Route: 047
     Dates: end: 20110224
  3. LOTEMAX [Suspect]
     Indication: OFF LABEL USE
     Route: 047
     Dates: start: 20110225, end: 20110310

REACTIONS (7)
  - VISION BLURRED [None]
  - EYE DISCHARGE [None]
  - EYELID OEDEMA [None]
  - EYE PAIN [None]
  - OCULAR HYPERAEMIA [None]
  - EYE PRURITUS [None]
  - ABNORMAL DREAMS [None]
